FAERS Safety Report 8576050-0 (Version None)
Quarter: 2012Q3

REPORT INFORMATION
  Report Type: 
  Country: None (occurrence: None)
  Receive Date: 20120725
  Receipt Date: 20120713
  Transmission Date: 20120928
  Serious: Yes (Hospitalization)
  Sender: FDA-Public Use
  Company Number: KAD201205-000323

PATIENT
  Sex: Female
  Weight: 66.36 kg

DRUGS (4)
  1. INCIVEK [Suspect]
     Dosage: 1 TABLET IN THE MORNING, 1 TABLET AT 2 PM AND 1 TABLET AT 9-10 PM, 3 TABLETS
     Dates: end: 20120501
  2. RIBAVIRIN [Suspect]
     Dates: start: 20120101
  3. PENICILLIN (PENICILLIN) [Suspect]
  4. PEGASYS [Suspect]
     Dates: start: 20120101

REACTIONS (3)
  - SWELLING [None]
  - PRURITUS [None]
  - DRY SKIN [None]
